FAERS Safety Report 16858893 (Version 1)
Quarter: 2019Q3

REPORT INFORMATION
  Report Type: Spontaneous
  Country: CO (occurrence: CO)
  Receive Date: 20190926
  Receipt Date: 20190926
  Transmission Date: 20191005
  Serious: Yes (Other)
  Sender: FDA-Public Use
  Company Number: CO-009507513-1909COL013322

PATIENT
  Age: 21 Year
  Sex: Male

DRUGS (1)
  1. CASPOFUNGIN ACETATE. [Suspect]
     Active Substance: CASPOFUNGIN ACETATE
     Dosage: ^0^ (UNITS NOT REPORTED)
     Route: 065

REACTIONS (1)
  - Furuncle [Not Recovered/Not Resolved]
